FAERS Safety Report 8231124-9 (Version None)
Quarter: 2012Q1

REPORT INFORMATION
  Report Type: 
  Country: None (occurrence: None)
  Receive Date: 20120323
  Receipt Date: 20120315
  Transmission Date: 20120608
  Serious: Yes (Life-Threatening)
  Sender: FDA-Public Use
  Company Number: CA-JNJFOC-20120307347

PATIENT
  Sex: Female
  Weight: 68.3 kg

DRUGS (5)
  1. LYRICA [Concomitant]
     Route: 065
  2. ESCITALOPRAM [Concomitant]
     Route: 065
  3. UNSPECIFIED BIRTH CONTROL [Concomitant]
     Indication: CONTRACEPTION
     Route: 065
  4. IMURAN [Concomitant]
     Route: 065
  5. REMICADE [Suspect]
     Indication: CROHN'S DISEASE
     Route: 042
     Dates: start: 20120315

REACTIONS (4)
  - SPEECH DISORDER [None]
  - PHARYNGEAL OEDEMA [None]
  - THROAT TIGHTNESS [None]
  - INFUSION RELATED REACTION [None]
